FAERS Safety Report 10082467 (Version 1)
Quarter: 2014Q2

REPORT INFORMATION
  Report Type: Spontaneous
  Country: JP (occurrence: JP)
  Receive Date: 20140416
  Receipt Date: 20140416
  Transmission Date: 20141212
  Serious: Yes (Hospitalization, Other)
  Sender: FDA-Public Use
  Company Number: JP-PFIZER INC-2014101054

PATIENT
  Age: 70 Year
  Sex: Male

DRUGS (1)
  1. HYDROCORTISONE [Suspect]
     Route: 048

REACTIONS (2)
  - Sepsis [Unknown]
  - Adrenal insufficiency [Unknown]
